FAERS Safety Report 23252819 (Version 1)
Quarter: 2023Q4

REPORT INFORMATION
  Report Type: Report from Study
  Country: MX (occurrence: MX)
  Receive Date: 20231201
  Receipt Date: 20231201
  Transmission Date: 20240109
  Serious: Yes (Hospitalization)
  Sender: FDA-Public Use
  Company Number: MX-BIOGEN-2023BI01238165

PATIENT
  Age: 22 Year
  Sex: Female

DRUGS (1)
  1. TYSABRI [Suspect]
     Active Substance: NATALIZUMAB
     Indication: Multiple sclerosis
     Dosage: 1 INTRAVENOUS INFUSION OF 300 MG OF TYSABRI (NATALIZUMAB) EVERY 28 DAYS
     Route: 050
     Dates: start: 20191230

REACTIONS (4)
  - Lower limb fracture [Not Recovered/Not Resolved]
  - Fall [Recovered/Resolved]
  - Musculoskeletal disorder [Unknown]
  - Gait inability [Unknown]

NARRATIVE: CASE EVENT DATE: 20230430
